FAERS Safety Report 12211825 (Version 1)
Quarter: 2016Q1

REPORT INFORMATION
  Report Type: Report from Study
  Country: BR (occurrence: BR)
  Receive Date: 20160325
  Receipt Date: 20160325
  Transmission Date: 20160526
  Serious: Yes (Hospitalization, Other)
  Sender: FDA-Public Use
  Company Number: BR-ABBVIE-13P-020-1094131-00

PATIENT
  Sex: Female
  Weight: 63 kg

DRUGS (8)
  1. REUQUINOL [Concomitant]
     Active Substance: HYDROXYCHLOROQUINE SULFATE
     Indication: RHEUMATOID ARTHRITIS
     Route: 048
     Dates: start: 2009, end: 2010
  2. REUQUINOL [Concomitant]
     Active Substance: HYDROXYCHLOROQUINE SULFATE
     Indication: PRODUCT USED FOR UNKNOWN INDICATION
     Route: 048
  3. LYRICA [Concomitant]
     Active Substance: PREGABALIN
     Indication: RHEUMATOID ARTHRITIS
     Route: 048
     Dates: start: 2007
  4. REUQUINOL [Concomitant]
     Active Substance: HYDROXYCHLOROQUINE SULFATE
     Route: 048
     Dates: start: 201305
  5. CORTICORTEN [Concomitant]
     Indication: RHEUMATOID ARTHRITIS
     Route: 048
     Dates: start: 2007
  6. HUMIRA [Suspect]
     Active Substance: ADALIMUMAB
     Indication: RHEUMATOID ARTHRITIS
     Route: 058
  7. CYMBALTA [Concomitant]
     Active Substance: DULOXETINE HYDROCHLORIDE
     Indication: PRODUCT USED FOR UNKNOWN INDICATION
  8. MIOSAN [Concomitant]
     Active Substance: CYCLOBENZAPRINE
     Indication: RHEUMATOID ARTHRITIS
     Route: 048
     Dates: start: 2007

REACTIONS (29)
  - Parosmia [Recovered/Resolved]
  - Gastric disorder [Recovered/Resolved]
  - Coordination abnormal [Recovered/Resolved]
  - Mass [Unknown]
  - Osteoarthritis [Not Recovered/Not Resolved]
  - Gastrointestinal carcinoma [Recovered/Resolved]
  - Joint swelling [Recovered/Resolved]
  - Muscular weakness [Not Recovered/Not Resolved]
  - Blister [Recovered/Resolved]
  - Fall [Recovered/Resolved]
  - Gastrointestinal carcinoma [Recovered/Resolved]
  - Feeding disorder [Recovered/Resolved]
  - Sensory loss [Not Recovered/Not Resolved]
  - Pain in extremity [Recovered/Resolved]
  - Musculoskeletal stiffness [Recovered/Resolved]
  - Oropharyngeal pain [Recovered/Resolved]
  - Arthralgia [Not Recovered/Not Resolved]
  - Gastric cancer [Recovered/Resolved]
  - Gait disturbance [Recovered/Resolved]
  - Spinal vascular disorder [Unknown]
  - Dysgeusia [Recovered/Resolved]
  - Nausea [Unknown]
  - Skin cancer [Recovered/Resolved]
  - Mobility decreased [Recovered/Resolved]
  - Weight decreased [Not Recovered/Not Resolved]
  - Central nervous system inflammation [Unknown]
  - Burning sensation [Unknown]
  - Musculoskeletal pain [Recovered/Resolved]
  - Inflammation [Recovered/Resolved]

NARRATIVE: CASE EVENT DATE: 2011
